FAERS Safety Report 11193009 (Version 1)
Quarter: 2015Q2

REPORT INFORMATION
  Report Type: Spontaneous
  Country: US (occurrence: None)
  Receive Date: 20150615
  Receipt Date: 20150615
  Transmission Date: 20150821
  Serious: Yes (Life-Threatening, Disabling)
  Sender: FDA-Public Use
  Company Number: None

PATIENT
  Age: 63 Year
  Sex: Female
  Weight: 120.2 kg

DRUGS (8)
  1. REMICADE [Suspect]
     Active Substance: INFLIXIMAB
     Indication: RHEUMATOID ARTHRITIS
     Dosage: 9 VIALS
     Route: 042
     Dates: start: 20100830, end: 20140924
  2. PREDNIZONE [Concomitant]
  3. NAUSEA MED [Concomitant]
  4. VIT B-12 [Concomitant]
  5. IRON PILL [Concomitant]
     Active Substance: IRON
  6. OMPRESOLE [Concomitant]
  7. MULTIVITAMIN [Concomitant]
     Active Substance: VITAMINS
  8. HYDROCODON [Concomitant]
     Active Substance: HYDROCODONE

REACTIONS (3)
  - Neuromyopathy [None]
  - Neoplasm malignant [None]
  - Abdominal pain [None]

NARRATIVE: CASE EVENT DATE: 20141001
